FAERS Safety Report 8842197 (Version 2)
Quarter: 2013Q1

REPORT INFORMATION
  Report Type: Spontaneous
  Country: IT (occurrence: IT)
  Receive Date: 20121016
  Receipt Date: 20130314
  Transmission Date: 20140127
  Serious: Yes (Hospitalization)
  Sender: FDA-Public Use
  Company Number: IT-BRISTOL-MYERS SQUIBB COMPANY-17022591

PATIENT
  Age: 13 Year
  Sex: Male

DRUGS (11)
  1. VEPESID [Suspect]
     Indication: NON-HODGKIN^S LYMPHOMA
     Route: 058
     Dates: start: 20120626, end: 20120929
  2. IFOSFAMIDE [Suspect]
     Indication: NON-HODGKIN^S LYMPHOMA
     Route: 042
     Dates: start: 20120626, end: 20120929
  3. METHOTREXATE [Suspect]
     Indication: NON-HODGKIN^S LYMPHOMA
     Dosage: METROTRESSATO SALE SODICO
     Route: 042
     Dates: start: 20120627, end: 20120925
  4. MYCOSTATIN [Concomitant]
  5. ZYLORIC [Concomitant]
  6. RANIDIL [Concomitant]
  7. ZOFRAN [Concomitant]
  8. BACTRIM [Concomitant]
  9. ENAPREN [Concomitant]
  10. DIFLUCAN [Concomitant]
  11. LACTULOSE [Concomitant]

REACTIONS (2)
  - Cough [Recovered/Resolved]
  - Gingivitis [Recovering/Resolving]
